FAERS Safety Report 9498562 (Version 1)
Quarter: 2013Q3

REPORT INFORMATION
  Report Type: Spontaneous
  Country: US (occurrence: US)
  Receive Date: 20130904
  Receipt Date: 20130904
  Transmission Date: 20140515
  Serious: No
  Sender: FDA-Public Use
  Company Number: US-PFIZER INC-2013252240

PATIENT
  Age: 63 Year
  Sex: Female

DRUGS (5)
  1. LEVOXYL [Suspect]
     Indication: HYPOTHYROIDISM
     Dosage: 75 UG, UNK
  2. SYNTHROID [Suspect]
     Indication: HYPOTHYROIDISM
     Dosage: UNK
  3. LISINOPRIL [Concomitant]
     Indication: HYPERTENSION
     Dosage: UNK
  4. NEXIUM [Concomitant]
     Indication: GASTROOESOPHAGEAL REFLUX DISEASE
     Dosage: UNK
  5. PREDNISONE [Concomitant]
     Indication: AUTOIMMUNE DISORDER
     Dosage: UNK

REACTIONS (1)
  - Pruritus [Unknown]
